FAERS Safety Report 14253871 (Version 4)
Quarter: 2018Q1

REPORT INFORMATION
  Report Type: Spontaneous
  Country: IL (occurrence: IL)
  Receive Date: 20171205
  Receipt Date: 20180321
  Transmission Date: 20180508
  Serious: Yes (Death)
  Sender: FDA-Public Use
  Company Number: IL-PFIZER INC-2017514098

PATIENT
  Age: 47 Year
  Sex: Female

DRUGS (2)
  1. GEMCITABINE HYDROCHLORIDE. [Suspect]
     Active Substance: GEMCITABINE HYDROCHLORIDE
     Indication: BREAST CANCER METASTATIC
     Dosage: 15000 MG/M2, UNK (CUMULATIVE DOSE)
  2. CARBOPLATIN. [Suspect]
     Active Substance: CARBOPLATIN
     Indication: BREAST CANCER METASTATIC
     Dosage: UNK

REACTIONS (2)
  - Thrombotic microangiopathy [Fatal]
  - Posterior reversible encephalopathy syndrome [Fatal]
